FAERS Safety Report 8144944-6 (Version None)
Quarter: 2012Q1

REPORT INFORMATION
  Report Type: 
  Country: None (occurrence: None)
  Receive Date: 20120217
  Receipt Date: 20120209
  Transmission Date: 20120608
  Serious: Yes (Death)
  Sender: FDA-Public Use
  Company Number: CA-MERCK-1202USA01666

PATIENT
  Age: 92 Year
  Sex: Female

DRUGS (1)
  1. COSOPT [Suspect]
     Dosage: IN EACH EYE
     Route: 047
     Dates: start: 20090317, end: 20120208

REACTIONS (1)
  - DEATH [None]
